FAERS Safety Report 8551657-5 (Version None)
Quarter: 2012Q3

REPORT INFORMATION
  Report Type: 
  Country: None (occurrence: None)
  Receive Date: 20120730
  Receipt Date: 20120723
  Transmission Date: 20120928
  Serious: Yes (Death)
  Sender: FDA-Public Use
  Company Number: JP-CELGENEUS-087-50794-12042727

PATIENT
  Sex: Female

DRUGS (10)
  1. NEUROTROPIN [Concomitant]
     Route: 065
  2. VITAMIN B12 [Concomitant]
     Route: 065
  3. CEFEPIME DIHYDROCHLORIDE HYDRATE [Concomitant]
     Route: 065
     Dates: start: 20120214, end: 20120227
  4. FAMOTIDINE [Concomitant]
     Route: 065
  5. VIDAZA [Suspect]
     Dosage: 75 MILLIGRAM/SQ. METER
     Route: 041
     Dates: start: 20120213, end: 20120217
  6. ADONA [Concomitant]
     Route: 065
  7. GLUCONSAN K [Concomitant]
     Route: 065
  8. ALLOPURINOL [Concomitant]
     Route: 065
  9. LYRICA [Concomitant]
     Route: 065
  10. FLUCONAZOLE [Concomitant]
     Route: 065

REACTIONS (2)
  - INFECTION [None]
  - RENAL IMPAIRMENT [None]
